FAERS Safety Report 4667614-5 (Version None)
Quarter: 2005Q2

REPORT INFORMATION
  Report Type: 
  Country: None (occurrence: None)
  Receive Date: 20050502
  Receipt Date: 20041129
  Transmission Date: 20051028
  Serious: Yes (Life-Threatening, Hospitalization)
  Sender: FDA-Public Use
  Company Number: PHEH2004US10542

PATIENT
  Age: 60 Year
  Sex: Male
  Weight: 150 kg

DRUGS (12)
  1. LOTREL [Suspect]
     Dosage: 5 MG AML/10 MG BENAZ QD
     Dates: start: 20040713, end: 20040714
  2. PEPCID [Concomitant]
  3. TOPAMAX [Concomitant]
  4. SYNTHROID [Concomitant]
  5. SKELAXIN [Concomitant]
  6. LIBRAX (CHLORDIAZEPOXIDE, CLIDINIUM BROMIDE) [Concomitant]
  7. DITROPAN XL [Concomitant]
  8. ACETYLSALICYLIC ACID SRT [Concomitant]
  9. VIOXX [Concomitant]
  10. VERAPAMIL [Concomitant]
  11. PREMARIN [Concomitant]
  12. MULTIVITAMINS (ASCORBIC ACID, ERGOCALCIFEROL, FOLIC ACID, NICOTINAMIDE [Concomitant]

REACTIONS (2)
  - ANGIONEUROTIC OEDEMA [None]
  - INTUBATION [None]
